FAERS Safety Report 4964207-7 (Version None)
Quarter: 2006Q2

REPORT INFORMATION
  Report Type: 
  Country: None (occurrence: None)
  Receive Date: 20060404
  Receipt Date: 20060404
  Transmission Date: 20061013
  Serious: Yes (Other)
  Sender: FDA-Public Use
  Company Number: None

PATIENT
  Sex: Female
  Weight: 71.2 kg

DRUGS (7)
  1. DOXORUBICIN HCL [Suspect]
     Indication: HODGKIN'S DISEASE
     Dosage: 25 MG
     Dates: start: 20060317
  2. GEMCITABINE [Suspect]
     Dosage: 800 MG
     Dates: start: 20060317, end: 20060317
  3. VINBLASTINE SULFATE [Suspect]
     Dosage: 6 MG
     Dates: start: 20060317, end: 20060317
  4. ATIVAN [Concomitant]
  5. COMPAZINE [Concomitant]
  6. ORTHO EVRA [Concomitant]
  7. ZOFRAN [Concomitant]

REACTIONS (1)
  - NEUTROPHIL COUNT DECREASED [None]
